FAERS Safety Report 15692149 (Version 2)
Quarter: 2018Q4

REPORT INFORMATION
  Report Type: Spontaneous
  Country: NL (occurrence: NL)
  Receive Date: 20181205
  Receipt Date: 20181211
  Transmission Date: 20190205
  Serious: Yes (Other)
  Sender: FDA-Public Use
  Company Number: NL-ASTRAZENECA-2018SF56126

PATIENT
  Sex: Female
  Weight: 85 kg

DRUGS (7)
  1. CALCICHEW [Concomitant]
     Active Substance: CALCIUM CARBONATE
  2. VALSARTAN. [Concomitant]
     Active Substance: VALSARTAN
  3. EUTHYROX [Concomitant]
     Active Substance: LEVOTHYROXINE SODIUM
  4. CRESTOR [Suspect]
     Active Substance: ROSUVASTATIN CALCIUM
     Indication: HYPERCHOLESTEROLAEMIA
     Route: 048
     Dates: start: 20180723, end: 20181024
  5. PANTOPRAZOL [Concomitant]
     Active Substance: PANTOPRAZOLE SODIUM
  6. SEROXAT [Concomitant]
     Active Substance: PAROXETINE HYDROCHLORIDE
  7. CLOPIDOGREL [Concomitant]
     Active Substance: CLOPIDOGREL BISULFATE

REACTIONS (5)
  - Anxiety [Recovered/Resolved]
  - Depressed mood [Recovered/Resolved]
  - Diplopia [Recovered/Resolved]
  - Suicidal ideation [Recovered/Resolved]
  - Vision blurred [Recovered/Resolved]
